FAERS Safety Report 7161443-9 (Version None)
Quarter: 2010Q4

REPORT INFORMATION
  Report Type: 
  Country: None (occurrence: None)
  Receive Date: 20101123
  Receipt Date: 20101008
  Transmission Date: 20110411
  Serious: No
  Sender: FDA-Public Use
  Company Number: 020112

PATIENT
  Sex: Female

DRUGS (1)
  1. CIMZIA [Suspect]
     Dosage: USED IT LESS THAN YEAR

REACTIONS (2)
  - MOTOR DYSFUNCTION [None]
  - NERVOUS SYSTEM DISORDER [None]
